FAERS Safety Report 6668709-7 (Version None)
Quarter: 2010Q2

REPORT INFORMATION
  Report Type: 
  Country: None (occurrence: None)
  Receive Date: 20100401
  Receipt Date: 20100318
  Transmission Date: 20101027
  Serious: Yes (Congenital Anomaly)
  Sender: FDA-Public Use
  Company Number: 1000012848

PATIENT

DRUGS (2)
  1. CARBAMAZEPINE [Suspect]
     Dosage: (100 MG), TRANSPLACENTAL
     Route: 064
  2. FOLATE [Concomitant]

REACTIONS (3)
  - DIGEORGE'S SYNDROME [None]
  - FALLOT'S TETRALOGY [None]
  - MATERNAL DRUGS AFFECTING FOETUS [None]
